FAERS Safety Report 7051196-7 (Version None)
Quarter: 2010Q4

REPORT INFORMATION
  Report Type: 
  Country: None (occurrence: None)
  Receive Date: 20101019
  Receipt Date: 20101012
  Transmission Date: 20110411
  Serious: Yes (Hospitalization, Other)
  Sender: FDA-Public Use
  Company Number: PHHO2010TR15070

PATIENT
  Sex: Female
  Weight: 52.3 kg

DRUGS (8)
  1. EXJADE [Suspect]
     Indication: IRON OVERLOAD
     Dosage: 20 MG
     Route: 048
     Dates: start: 20100701, end: 20100714
  2. EXJADE [Suspect]
     Dosage: 30 MG
     Route: 048
     Dates: start: 20100715, end: 20100721
  3. EXJADE [Suspect]
     Dosage: 40 MG
     Route: 048
     Dates: start: 20100722, end: 20101003
  4. ROCALTROL [Concomitant]
     Indication: OSTEOPOROSIS
  5. FOSAMAX [Concomitant]
     Indication: OSTEOPOROSIS
  6. CALCIUM [Concomitant]
     Indication: OSTEOPOROSIS
  7. VENTOLIN [Concomitant]
     Indication: BRONCHITIS
  8. SUSTANON [Concomitant]
     Indication: SECONDARY HYPOGONADISM

REACTIONS (5)
  - DEAFNESS [None]
  - DIARRHOEA [None]
  - GASTROENTERITIS [None]
  - PYREXIA [None]
  - VOMITING [None]
